FAERS Safety Report 14898427 (Version 6)
Quarter: 2018Q3

REPORT INFORMATION
  Report Type: Spontaneous
  Country: US (occurrence: US)
  Receive Date: 20180515
  Receipt Date: 20180730
  Transmission Date: 20181010
  Serious: No
  Sender: FDA-Public Use
  Company Number: US-SA-2018SA096669

PATIENT
  Age: 58 Year
  Sex: Female

DRUGS (4)
  1. SOLOSTAR [Suspect]
     Active Substance: DEVICE
     Indication: TYPE 2 DIABETES MELLITUS
     Dates: start: 201712
  2. SOLOSTAR [Suspect]
     Active Substance: DEVICE
     Dates: start: 201712
  3. TOUJEO [Suspect]
     Active Substance: INSULIN GLARGINE
     Indication: TYPE 2 DIABETES MELLITUS
     Dosage: 18 DF,QD
     Route: 051
     Dates: start: 201712
  4. TOUJEO [Suspect]
     Active Substance: INSULIN GLARGINE
     Dosage: 18 DF,QD
     Route: 051
     Dates: start: 201712

REACTIONS (2)
  - Blood glucose increased [Unknown]
  - Device use issue [Unknown]
